FAERS Safety Report 13118410 (Version 2)
Quarter: 2017Q1

REPORT INFORMATION
  Report Type: Spontaneous
  Country: CH (occurrence: CH)
  Receive Date: 20170116
  Receipt Date: 20170119
  Transmission Date: 20170428
  Serious: Yes (Hospitalization)
  Sender: FDA-Public Use
  Company Number: CH-JNJFOC-20170110490

PATIENT
  Age: 19 Year
  Sex: Female

DRUGS (8)
  1. REMICADE [Suspect]
     Active Substance: INFLIXIMAB
     Indication: BEHCET^S SYNDROME
     Route: 042
     Dates: start: 20161003
  2. REMICADE [Suspect]
     Active Substance: INFLIXIMAB
     Indication: BEHCET^S SYNDROME
     Dosage: DOSE INCREASED
     Route: 042
     Dates: start: 20151217
  3. NEXIUM [Concomitant]
     Active Substance: ESOMEPRAZOLE MAGNESIUM
     Route: 048
     Dates: start: 20150817
  4. AZATHIOPRINE. [Concomitant]
     Active Substance: AZATHIOPRINE
     Dosage: DOSE ADJUSTED
     Route: 048
     Dates: start: 20150423
  5. REMICADE [Suspect]
     Active Substance: INFLIXIMAB
     Indication: BEHCET^S SYNDROME
     Dosage: 500MG
     Route: 042
     Dates: start: 20130214
  6. CIPRALEX [Concomitant]
     Active Substance: ESCITALOPRAM OXALATE
     Route: 048
     Dates: start: 20150817
  7. AZATHIOPRINE. [Concomitant]
     Active Substance: AZATHIOPRINE
     Route: 048
     Dates: start: 201302
  8. IMPLANON [Concomitant]
     Active Substance: ETONOGESTREL
     Route: 058
     Dates: start: 20150902

REACTIONS (4)
  - Off label use [Unknown]
  - Product use issue [Unknown]
  - Meningitis aseptic [Unknown]
  - Brachial plexopathy [Unknown]

NARRATIVE: CASE EVENT DATE: 20130214
